FAERS Safety Report 10035612 (Version 1)
Quarter: 2014Q1

REPORT INFORMATION
  Report Type: Spontaneous
  Country: MX (occurrence: MX)
  Receive Date: 20140325
  Receipt Date: 20140325
  Transmission Date: 20141002
  Serious: Yes (Hospitalization, Disabling, Other)
  Sender: FDA-Public Use
  Company Number: MX-B.I. PHARMACEUTICALS,INC./RIDGEFIELD-2014-BI-12066MX

PATIENT
  Age: 76 Year
  Sex: Female
  Weight: 53.2 kg

DRUGS (8)
  1. MICARDIS TABLETS [Suspect]
     Indication: HYPERTENSION
     Route: 048
     Dates: start: 201103, end: 201305
  2. MICARDIS PLUS [Suspect]
     Indication: HYPERTENSIVE CRISIS
     Dosage: DOSE PER APPLICATION: 80/12.5 MILLIGRAM
     Route: 065
     Dates: start: 201305
  3. PRADAXAR [Suspect]
     Indication: CEREBROVASCULAR ACCIDENT PROPHYLAXIS
     Route: 065
     Dates: start: 201310
  4. CINARIZINE [Concomitant]
     Indication: TRANSIENT ISCHAEMIC ATTACK
     Dosage: DOSE PER APPLICATION: 75-100 MG
     Route: 065
     Dates: start: 201003
  5. NAPROXEN [Concomitant]
     Route: 065
  6. NIMOTOP [Concomitant]
     Indication: VERTIGO
     Route: 065
  7. DICLOFENAC [Concomitant]
     Route: 065
  8. FOSAMAX [Concomitant]
     Indication: OSTEOPOROSIS
     Route: 065

REACTIONS (6)
  - Loss of consciousness [Unknown]
  - Ischaemic stroke [Unknown]
  - Cerebrovascular accident [Unknown]
  - Hypertensive crisis [Unknown]
  - Vertigo positional [Unknown]
  - Off label use [Unknown]
